FAERS Safety Report 22161133 (Version 4)
Quarter: 2023Q2

REPORT INFORMATION
  Report Type: Spontaneous
  Country: US (occurrence: US)
  Receive Date: 20230331
  Receipt Date: 20230526
  Transmission Date: 20230722
  Serious: No
  Sender: FDA-Public Use
  Company Number: US-LUPIN PHARMACEUTICALS INC.-2023-02440

PATIENT

DRUGS (5)
  1. ALBUTEROL SULFATE [Suspect]
     Active Substance: ALBUTEROL SULFATE
     Indication: Dyspnoea
     Dosage: UNK UNK, PRN, 2 TIMES A DAY
     Dates: start: 20230322, end: 20230322
  2. ALBUTEROL SULFATE [Suspect]
     Active Substance: ALBUTEROL SULFATE
     Indication: Hypersensitivity
  3. MONTELUKAST [Concomitant]
     Active Substance: MONTELUKAST SODIUM
     Indication: Hypersensitivity
     Dosage: UNK, ONCE IN WHILE AS NEEDED
     Route: 065
  4. ADVAIR HFA [Concomitant]
     Active Substance: FLUTICASONE PROPIONATE\SALMETEROL XINAFOATE
     Indication: Product used for unknown indication
     Dosage: UNK, AS NEEDED
     Route: 065
  5. LORATADINE [Concomitant]
     Active Substance: LORATADINE
     Indication: Hypersensitivity
     Dosage: UNK
     Route: 065

REACTIONS (4)
  - Drug dose omission by device [Unknown]
  - Device delivery system issue [Unknown]
  - Product use in unapproved indication [Unknown]
  - No adverse event [Unknown]
